FAERS Safety Report 6262793-0 (Version None)
Quarter: 2009Q3

REPORT INFORMATION
  Report Type: 
  Country: None (occurrence: None)
  Receive Date: 20090708
  Receipt Date: 20090629
  Transmission Date: 20100115
  Serious: Yes (Hospitalization)
  Sender: FDA-Public Use
  Company Number: 2009AL003741

PATIENT
  Age: 62 Year
  Sex: Male

DRUGS (5)
  1. DIGOXIN [Suspect]
     Dosage: 0.25MG, DAILY, PO
     Route: 048
     Dates: start: 20070221
  2. ATENOLOL [Concomitant]
  3. ATIVAN [Concomitant]
  4. PROTONIX [Concomitant]
  5. CARDIZEM [Concomitant]

REACTIONS (7)
  - ABDOMINAL PAIN [None]
  - ANXIETY [None]
  - ATRIAL FIBRILLATION [None]
  - ECONOMIC PROBLEM [None]
  - MULTIPLE INJURIES [None]
  - SURGERY [None]
  - THERAPEUTIC AGENT TOXICITY [None]
